FAERS Safety Report 12155976 (Version 1)
Quarter: 2016Q1

REPORT INFORMATION
  Report Type: Spontaneous
  Country: US (occurrence: US)
  Receive Date: 20160307
  Receipt Date: 20160307
  Transmission Date: 20160526
  Serious: No
  Sender: FDA-Public Use
  Company Number: US-ENDO PHARMACEUTICALS INC.-2016-001223

PATIENT
  Age: 68 Year
  Sex: Male

DRUGS (1)
  1. LIDOCAINE HYDROCHLORIDE ORAL TOPICAL SOLUTION .02 [Suspect]
     Active Substance: LIDOCAINE HYDROCHLORIDE
     Indication: PRODUCT USED FOR UNKNOWN INDICATION
     Route: 065
     Dates: start: 20160211, end: 20160211

REACTIONS (1)
  - Intentional product misuse [Unknown]
